FAERS Safety Report 5223010-3 (Version None)
Quarter: 2007Q1

REPORT INFORMATION
  Report Type: 
  Country: None (occurrence: None)
  Receive Date: 20070124
  Receipt Date: 20070111
  Transmission Date: 20070707
  Serious: Yes (Life-Threatening, Hospitalization)
  Sender: FDA-Public Use
  Company Number: 6028994

PATIENT
  Age: 45 Year
  Sex: Male

DRUGS (4)
  1. BISOPROLOL FUMARATE [Suspect]
     Indication: DRUG USE FOR UNKNOWN INDICATION
     Dosage: 560,0000 MG (560 MG, 1 IN 1 D)
  2. DILTIAZEM HCL [Suspect]
     Indication: DRUG USE FOR UNKNOWN INDICATION
  3. VENLAFAXINE HCL [Suspect]
     Indication: DRUG USE FOR UNKNOWN INDICATION
  4. ADVIL [Suspect]
     Indication: DRUG USE FOR UNKNOWN INDICATION

REACTIONS (4)
  - CARDIOGENIC SHOCK [None]
  - CATHETER SITE HAEMORRHAGE [None]
  - MULTIPLE DRUG OVERDOSE INTENTIONAL [None]
  - RESPIRATORY FAILURE [None]
